FAERS Safety Report 15468083 (Version 2)
Quarter: 2018Q4

REPORT INFORMATION
  Report Type: Spontaneous
  Country: US (occurrence: US)
  Receive Date: 20181005
  Receipt Date: 20181228
  Transmission Date: 20190204
  Serious: Yes (Death, Hospitalization, Other)
  Sender: FDA-Public Use
  Company Number: US-MYLANLABS-2018M1071786

PATIENT

DRUGS (42)
  1. TOPIRAMATE. [Suspect]
     Active Substance: TOPIRAMATE
     Indication: STATUS EPILEPTICUS
     Route: 065
  2. CLONAZEPAM. [Concomitant]
     Active Substance: CLONAZEPAM
     Indication: SEIZURE
  3. SULTIAME [Concomitant]
     Active Substance: SULTHIAME
     Indication: STATUS EPILEPTICUS
     Route: 065
  4. NITRAZEPAM [Concomitant]
     Active Substance: NITRAZEPAM
     Indication: SEIZURE
  5. FOSPHENYTOIN [Concomitant]
     Active Substance: FOSPHENYTOIN
     Indication: STATUS EPILEPTICUS
     Route: 065
  6. KETAMINE [Interacting]
     Active Substance: KETAMINE
     Indication: SEIZURE
     Dosage: 1.5 MG/KG, QH, MAINTENANCE INFUSION
     Route: 065
  7. KETAMINE [Interacting]
     Active Substance: KETAMINE
     Dosage: 0.5 MG/KG, QH, GOAL OF UPTITRATING BY 0.5 MG/KG/HOUR
     Route: 065
  8. KETAMINE [Interacting]
     Active Substance: KETAMINE
     Dosage: 3 TO 4 MG/KG/HOUR ON HOSPITAL DAY 25
  9. LIDOCAINE. [Concomitant]
     Active Substance: LIDOCAINE
     Indication: STATUS EPILEPTICUS
     Route: 065
  10. VALPROIC ACID. [Suspect]
     Active Substance: VALPROIC ACID
     Indication: SEIZURE
  11. KETAMINE [Interacting]
     Active Substance: KETAMINE
     Dosage: UP-TITRATED BY 1.8 MG/KG/HOUR EVERY FIVE MINUTES
  12. EPINEPHRINE. [Suspect]
     Active Substance: EPINEPHRINE
     Indication: STATUS EPILEPTICUS
     Dosage: UNK
     Route: 065
  13. PHENYTOIN. [Concomitant]
     Active Substance: PHENYTOIN
     Indication: SEIZURE
  14. GABAPENTIN. [Concomitant]
     Active Substance: GABAPENTIN
     Indication: EPILEPSY
  15. LEVETIRACETAM. [Concomitant]
     Active Substance: LEVETIRACETAM
     Indication: SEIZURE
  16. MIDAZOLAM [Concomitant]
     Active Substance: MIDAZOLAM HYDROCHLORIDE
     Indication: STATUS EPILEPTICUS
     Dosage: 0.6 TO 2.8 MG/KG/HOUR
     Route: 065
  17. LACOSAMIDE. [Concomitant]
     Active Substance: LACOSAMIDE
     Indication: STATUS EPILEPTICUS
     Dosage: UNK
     Route: 065
  18. GABAPENTIN. [Concomitant]
     Active Substance: GABAPENTIN
     Indication: STATUS EPILEPTICUS
     Route: 065
  19. CLONAZEPAM. [Concomitant]
     Active Substance: CLONAZEPAM
     Indication: STATUS EPILEPTICUS
     Dosage: UNK
     Route: 065
  20. CARBAMAZEPIN [Concomitant]
     Active Substance: CARBAMAZEPINE
     Indication: SEIZURE
  21. KETAMINE [Interacting]
     Active Substance: KETAMINE
     Dosage: 7.23 UNK
  22. MIDAZOLAM [Interacting]
     Active Substance: MIDAZOLAM HYDROCHLORIDE
     Indication: SEIZURE
  23. EPINEPHRINE. [Suspect]
     Active Substance: EPINEPHRINE
     Indication: CARDIAC ARREST
  24. PHENOBARBITONE                     /00023201/ [Concomitant]
     Active Substance: PHENOBARBITAL
     Indication: SEIZURE
  25. LACOSAMIDE. [Concomitant]
     Active Substance: LACOSAMIDE
     Indication: SEIZURE
  26. OXCARBAZEPINE. [Concomitant]
     Active Substance: OXCARBAZEPINE
     Indication: STATUS EPILEPTICUS
     Dosage: UNK
     Route: 065
  27. CARBAMAZEPIN [Concomitant]
     Active Substance: CARBAMAZEPINE
     Indication: STATUS EPILEPTICUS
     Route: 065
  28. KETAMINE [Interacting]
     Active Substance: KETAMINE
     Indication: STATUS EPILEPTICUS
     Dosage: 3 MG/KG, BOLUS
     Route: 065
  29. CLOBAZAM. [Concomitant]
     Active Substance: CLOBAZAM
     Indication: STATUS EPILEPTICUS
     Route: 065
  30. PHENOBARBITONE                     /00023201/ [Concomitant]
     Active Substance: PHENOBARBITAL
     Indication: STATUS EPILEPTICUS
     Route: 065
  31. KETAMINE [Interacting]
     Active Substance: KETAMINE
     Dosage: 4 MG/KG, QH, UP-TITRATION
  32. TOPIRAMATE. [Suspect]
     Active Substance: TOPIRAMATE
     Indication: SEIZURE
  33. PHENYTOIN. [Concomitant]
     Active Substance: PHENYTOIN
     Indication: EPILEPSY
     Route: 065
  34. SODIUM HYDROGEN CARBONATE [Concomitant]
     Active Substance: SODIUM BICARBONATE
     Indication: STATUS EPILEPTICUS
     Route: 065
  35. PROPOFOL. [Concomitant]
     Active Substance: PROPOFOL
     Indication: STATUS EPILEPTICUS
     Route: 065
  36. PROPOFOL. [Concomitant]
     Active Substance: PROPOFOL
     Indication: SEIZURE
  37. NITRAZEPAM [Concomitant]
     Active Substance: NITRAZEPAM
     Indication: STATUS EPILEPTICUS
     Dosage: UNK
     Route: 065
  38. VALPROIC ACID. [Suspect]
     Active Substance: VALPROIC ACID
     Indication: STATUS EPILEPTICUS
     Route: 065
  39. MIDAZOLAM [Interacting]
     Active Substance: MIDAZOLAM HYDROCHLORIDE
     Indication: STATUS EPILEPTICUS
     Route: 065
  40. CLOBAZAM. [Concomitant]
     Active Substance: CLOBAZAM
     Indication: SEIZURE
  41. LEVETIRACETAM. [Concomitant]
     Active Substance: LEVETIRACETAM
     Indication: STATUS EPILEPTICUS
     Dosage: UNK
     Route: 065
  42. SULTIAME [Concomitant]
     Active Substance: SULTHIAME
     Indication: SEIZURE

REACTIONS (12)
  - Thrombocytopenia [Unknown]
  - Drug ineffective [Fatal]
  - Drug level above therapeutic [Unknown]
  - Cardiac arrest [Fatal]
  - Acidosis hyperchloraemic [Unknown]
  - Hyponatraemia [Unknown]
  - Renal tubular acidosis [Unknown]
  - Metabolic acidosis [Fatal]
  - Lactic acidosis [Unknown]
  - Drug interaction [Unknown]
  - Hypothermia [Unknown]
  - Pulseless electrical activity [Fatal]
